FAERS Safety Report 13078333 (Version 1)
Quarter: 2017Q1

REPORT INFORMATION
  Report Type: Spontaneous
  Country: IN (occurrence: IN)
  Receive Date: 20170102
  Receipt Date: 20170102
  Transmission Date: 20170428
  Serious: Yes (Other)
  Sender: FDA-Public Use
  Company Number: IN-GLENMARK PHARMACEUTICALS INC, USA.-2016GMK025678

PATIENT

DRUGS (1)
  1. DICLOFENAC SODIUM. [Suspect]
     Active Substance: DICLOFENAC SODIUM
     Indication: DIABETIC RETINAL OEDEMA
     Dosage: 450 ?G, UNK
     Route: 050

REACTIONS (4)
  - Internal limiting membrane peeling [Recovered/Resolved]
  - Macular fibrosis [Recovered/Resolved]
  - Retinal toxicity [Recovered/Resolved]
  - Retinal degeneration [Recovered/Resolved]
